FAERS Safety Report 12376544 (Version 2)
Quarter: 2016Q3

REPORT INFORMATION
  Report Type: Spontaneous
  Country: US (occurrence: US)
  Receive Date: 20160517
  Receipt Date: 20160901
  Transmission Date: 20161109
  Serious: No
  Sender: FDA-Public Use
  Company Number: US-RELYPSA-RLY2016000144

PATIENT
  Age: 68 Year

DRUGS (16)
  1. RENA-VITE [Concomitant]
     Active Substance: ASCORBIC ACID\BIOTIN\CALCIUM PANTOTHENATE\CYANOCOBALAMIN\FOLIC ACID\NIACINAMIDE\PYRIDOXINE HYDROCHLORIDE\RIBOFLAVIN\THIAMINE MONONITRATE
  2. PANTOPRAZOLE SODIUM. [Concomitant]
     Active Substance: PANTOPRAZOLE SODIUM
  3. LANTUS (SOLOSTAR) [Concomitant]
  4. COREG [Concomitant]
     Active Substance: CARVEDILOL
  5. WELCHOL [Concomitant]
     Active Substance: COLESEVELAM HYDROCHLORIDE
  6. MAGNESIUM OXIDE. [Concomitant]
     Active Substance: MAGNESIUM OXIDE
  7. TYLENOL EXTRA STRENGTH [Concomitant]
     Active Substance: ACETAMINOPHEN
  8. VELTASSA [Suspect]
     Active Substance: PATIROMER
     Indication: HYPERKALAEMIA
     Dosage: 8.4 G, QD
     Route: 048
     Dates: start: 20160217
  9. FUROSEMIDE. [Concomitant]
     Active Substance: FUROSEMIDE
  10. FERROUS SULFATE. [Concomitant]
     Active Substance: FERROUS SULFATE
  11. ASPIRIN 81 [Concomitant]
     Active Substance: ASPIRIN
  12. VITAMIN D                          /00107901/ [Concomitant]
     Active Substance: ERGOCALCIFEROL
  13. TRAVATAN Z [Concomitant]
     Active Substance: TRAVOPROST
  14. GLIPIZIDE. [Concomitant]
     Active Substance: GLIPIZIDE
  15. NOVOLOG [Concomitant]
     Active Substance: INSULIN ASPART
  16. CALCITRIOL. [Concomitant]
     Active Substance: CALCITRIOL

REACTIONS (2)
  - Microalbuminuria [Unknown]
  - Urine abnormality [Unknown]
